FAERS Safety Report 7156022-3 (Version None)
Quarter: 2010Q4

REPORT INFORMATION
  Report Type: 
  Country: None (occurrence: None)
  Receive Date: 20101123
  Receipt Date: 20100901
  Transmission Date: 20110411
  Serious: Yes (Hospitalization)
  Sender: FDA-Public Use
  Company Number: 016030

PATIENT
  Sex: Female

DRUGS (6)
  1. CIMZIA [Suspect]
     Indication: CROHN'S DISEASE
     Dosage: 400 MG 1X/4 WEEKS SUBCUTANEOUS
     Route: 058
     Dates: start: 20090916, end: 20100721
  2. PROBIOTICA [Concomitant]
  3. CANASA [Concomitant]
  4. PROTONIX [Concomitant]
  5. LEVSIN SL [Concomitant]
  6. IMODIUM [Concomitant]

REACTIONS (2)
  - BRONCHITIS [None]
  - CROHN'S DISEASE [None]
